FAERS Safety Report 22169321 (Version 2)
Quarter: 2023Q2

REPORT INFORMATION
  Report Type: Report from Study
  Country: DE (occurrence: DE)
  Receive Date: 20230404
  Receipt Date: 20230515
  Transmission Date: 20230721
  Serious: Yes (Hospitalization)
  Sender: FDA-Public Use
  Company Number: DE-SA-SAC20230131000971

PATIENT
  Age: 61 Year
  Sex: Female
  Weight: 49 kg

DRUGS (8)
  1. ISATUXIMAB [Suspect]
     Active Substance: ISATUXIMAB
     Indication: Plasma cell myeloma
     Dosage: 490 MG
     Dates: start: 20220503, end: 20220503
  2. ISATUXIMAB [Suspect]
     Active Substance: ISATUXIMAB
     Dosage: 490 MG
     Dates: start: 20221130, end: 20221130
  3. CARFILZOMIB [Suspect]
     Active Substance: CARFILZOMIB
     Indication: Plasma cell myeloma
     Dosage: 85 MG
     Route: 042
     Dates: start: 20220503, end: 20220503
  4. CARFILZOMIB [Suspect]
     Active Substance: CARFILZOMIB
     Dosage: 85 MG
     Route: 042
     Dates: start: 20221130, end: 20221130
  5. LENALIDOMIDE [Suspect]
     Active Substance: LENALIDOMIDE
     Indication: Plasma cell myeloma
     Dosage: 10 MG
     Route: 048
     Dates: start: 20220503, end: 20220503
  6. LENALIDOMIDE [Suspect]
     Active Substance: LENALIDOMIDE
     Dosage: 10 MG
     Route: 048
     Dates: start: 20221206, end: 20221206
  7. DEXAMETHASONE [Concomitant]
     Active Substance: DEXAMETHASONE
     Indication: Plasma cell myeloma
     Dosage: 40 MG
     Route: 048
     Dates: start: 20221207, end: 20221207
  8. DEXAMETHASONE [Concomitant]
     Active Substance: DEXAMETHASONE
     Dosage: 40 MG
     Route: 048
     Dates: start: 20220503, end: 20220503

REACTIONS (2)
  - Enteritis [Recovered/Resolved]
  - COVID-19 [Recovered/Resolved]

NARRATIVE: CASE EVENT DATE: 20230129
